FAERS Safety Report 9585680 (Version 1)
Quarter: 2013Q4

REPORT INFORMATION
  Report Type: Spontaneous
  Country: IT (occurrence: IT)
  Receive Date: 20131003
  Receipt Date: 20131003
  Transmission Date: 20140711
  Serious: Yes (Hospitalization)
  Sender: FDA-Public Use
  Company Number: IT-009507513-1309ITA013982

PATIENT
  Age: 47 Year
  Sex: Male

DRUGS (3)
  1. RIBAVIRIN [Suspect]
     Indication: HEPATITIS C ANTIBODY POSITIVE
     Dosage: UNK
     Route: 048
     Dates: start: 20130321, end: 20130627
  2. TELAPREVIR [Suspect]
     Indication: HEPATITIS C
     Dosage: 2250MG DAILY
     Route: 048
     Dates: start: 20130321, end: 20130611
  3. PEGASYS [Suspect]
     Indication: HEPATITIS C ANTIBODY POSITIVE
     Route: 058

REACTIONS (2)
  - Rash erythematous [Unknown]
  - Anaemia [Unknown]
